FAERS Safety Report 7146135-4 (Version None)
Quarter: 2010Q4

REPORT INFORMATION
  Report Type: 
  Country: None (occurrence: None)
  Receive Date: 20101208
  Receipt Date: 20101129
  Transmission Date: 20110411
  Serious: Yes (Hospitalization, Other)
  Sender: FDA-Public Use
  Company Number: CA-ASTRAZENECA-2010SE53133

PATIENT
  Sex: Female

DRUGS (5)
  1. ARIMIDEX [Suspect]
     Indication: BREAST CANCER
     Route: 048
     Dates: start: 20080101
  2. ARIMIDEX [Suspect]
     Route: 048
  3. WARFARIN SODIUM [Concomitant]
  4. LIPITOR [Concomitant]
  5. ATENOLOL [Concomitant]

REACTIONS (2)
  - HIP ARTHROPLASTY [None]
  - THROMBOSIS [None]
